FAERS Safety Report 20905002 (Version 1)
Quarter: 2022Q2

REPORT INFORMATION
  Report Type: Spontaneous
  Country: US (occurrence: None)
  Receive Date: 20220601
  Receipt Date: 20220601
  Transmission Date: 20220720
  Serious: No
  Sender: FDA-Public Use
  Company Number: None

PATIENT
  Age: 59 Year
  Sex: Female
  Weight: 53.1 kg

DRUGS (6)
  1. PAXLOVID [Suspect]
     Active Substance: NIRMATRELVIR\RITONAVIR
     Indication: COVID-19
     Dosage: OTHER QUANTITY : 3 TABLET(S);?FREQUENCY : TWICE A DAY;?
     Route: 048
     Dates: start: 20220507, end: 20220511
  2. LEVOTHYROXINE [Concomitant]
     Active Substance: LEVOTHYROXINE
  3. CALCIUM [Concomitant]
  4. VITAMIN D [Concomitant]
     Active Substance: VITAMIN D NOS
  5. MAGNESIUM ASTRAGALUS [Concomitant]
  6. PROBIOTIC [Concomitant]

REACTIONS (5)
  - Rebound effect [None]
  - Headache [None]
  - Nasal congestion [None]
  - Fatigue [None]
  - COVID-19 [None]

NARRATIVE: CASE EVENT DATE: 20220520
